FAERS Safety Report 17914439 (Version 2)
Quarter: 2021Q4

REPORT INFORMATION
  Report Type: Spontaneous
  Country: US (occurrence: US)
  Receive Date: 20200618
  Receipt Date: 20211005
  Transmission Date: 20220303
  Serious: No
  Sender: FDA-Public Use
  Company Number: US-ADAMAS PHARMA, LLC-2020ADA01099

PATIENT
  Sex: Female

DRUGS (9)
  1. GOCOVRI [Suspect]
     Active Substance: AMANTADINE
     Indication: Parkinson^s disease
     Dosage: AS DIRECTED
     Dates: start: 201805
  2. SINEMET [Suspect]
     Active Substance: CARBIDOPA\LEVODOPA
     Dosage: FULL PILL
  3. SINEMET [Suspect]
     Active Substance: CARBIDOPA\LEVODOPA
     Dosage: HALF PILL
  4. CARBIDOPA [Concomitant]
     Active Substance: CARBIDOPA
     Dosage: FULL PILL, 1X/DAY IN THE MORNING
  5. RYTARY [Concomitant]
     Active Substance: CARBIDOPA\LEVODOPA
     Dosage: 1X/DAY, IN THE MORNING
  6. RYTARY [Concomitant]
     Active Substance: CARBIDOPA\LEVODOPA
     Dosage: 1X/DAY, IN THE AFTERNOON
  7. LEVODOPA [Concomitant]
     Active Substance: LEVODOPA
     Dosage: UNK
  8. LEVODOPA [Concomitant]
     Active Substance: LEVODOPA
     Dosage: ^STRONGER DOSE^ AT NOON
  9. LEVODOPA [Concomitant]
     Active Substance: LEVODOPA
     Dosage: ^SMALLER DOSE^ LATER IN THE DAY (AFTER NOON)

REACTIONS (2)
  - Dyskinesia [Unknown]
  - Anxiety [Not Recovered/Not Resolved]
